FAERS Safety Report 24872268 (Version 2)
Quarter: 2025Q1

REPORT INFORMATION
  Report Type: Spontaneous
  Country: GB (occurrence: GB)
  Receive Date: 20250122
  Receipt Date: 20250130
  Transmission Date: 20250408
  Serious: Yes (Death, Other)
  Sender: ROCHE
  Company Number: None

PATIENT
  Age: 65 Year
  Sex: Male

DRUGS (12)
  1. ALECENSA [Suspect]
     Active Substance: ALECTINIB HYDROCHLORIDE
     Indication: Lung neoplasm malignant
     Route: 065
     Dates: start: 20241115, end: 20241129
  2. Allopurional [Concomitant]
  3. Saibutamol [Concomitant]
  4. Dovober Gel [Concomitant]
  5. APIXABAN [Concomitant]
     Active Substance: APIXABAN
  6. AMOXICILLIN [Concomitant]
     Active Substance: AMOXICILLIN
  7. MIRTAZAPINE [Concomitant]
     Active Substance: MIRTAZAPINE
  8. OMEPRAZOLE [Concomitant]
     Active Substance: OMEPRAZOLE
  9. CODEINE [Concomitant]
     Active Substance: CODEINE
  10. POLYETHYLENE GLYCOL 3350\POTASSIUM CHLORIDE\SODIUM BICARBONATE\SODIUM [Concomitant]
     Active Substance: POLYETHYLENE GLYCOL 3350\POTASSIUM CHLORIDE\SODIUM BICARBONATE\SODIUM CHLORIDE
  11. SENNA [Concomitant]
     Active Substance: SENNOSIDES
  12. LANSOPRAZOLE [Concomitant]
     Active Substance: LANSOPRAZOLE

REACTIONS (18)
  - Asthenia [Unknown]
  - Muscular weakness [Unknown]
  - Death [Fatal]
  - Dyspepsia [Unknown]
  - Cardiac arrest [Unknown]
  - Abdominal pain upper [Unknown]
  - Fatigue [Unknown]
  - Malaise [Unknown]
  - Transient ischaemic attack [Unknown]
  - Headache [Unknown]
  - Paraesthesia [Unknown]
  - Oropharyngeal pain [Unknown]
  - Rash [Unknown]
  - Diplopia [Unknown]
  - Constipation [Unknown]
  - Arthralgia [Unknown]
  - Pain in extremity [Unknown]
  - Productive cough [Unknown]

NARRATIVE: CASE EVENT DATE: 20241119
